FAERS Safety Report 14919790 (Version 1)
Quarter: 2018Q2

REPORT INFORMATION
  Report Type: Report from Study
  Country: US (occurrence: US)
  Receive Date: 20180521
  Receipt Date: 20180521
  Transmission Date: 20180711
  Serious: Yes (Other)
  Sender: FDA-Public Use
  Company Number: US-GILEAD-2018-0338902

PATIENT
  Age: 76 Year
  Sex: Female

DRUGS (2)
  1. REVATIO [Concomitant]
     Active Substance: SILDENAFIL CITRATE
  2. AMBRISENTAN [Suspect]
     Active Substance: AMBRISENTAN
     Indication: PRODUCT USED FOR UNKNOWN INDICATION
     Dosage: 5 MG, QD
     Route: 065
     Dates: start: 20160106

REACTIONS (5)
  - Arthralgia [Unknown]
  - Myocardial infarction [Unknown]
  - Joint swelling [Not Recovered/Not Resolved]
  - Gait inability [Unknown]
  - Aspiration joint [Unknown]

NARRATIVE: CASE EVENT DATE: 20180510
